FAERS Safety Report 9285822 (Version 1)
Quarter: 2013Q2

REPORT INFORMATION
  Report Type: Spontaneous
  Country: US (occurrence: US)
  Receive Date: 20130513
  Receipt Date: 20130513
  Transmission Date: 20140414
  Serious: Yes (Other)
  Sender: FDA-Public Use
  Company Number: US-SANOFI-AVENTIS-2013SA046623

PATIENT
  Age: 74 Year
  Sex: Female

DRUGS (1)
  1. AMBIEN [Suspect]

REACTIONS (4)
  - Fall [Unknown]
  - Patella fracture [Unknown]
  - Laceration [Unknown]
  - Head injury [Unknown]
